FAERS Safety Report 10092203 (Version 2)
Quarter: 2014Q2

REPORT INFORMATION
  Report Type: Spontaneous
  Country: US (occurrence: US)
  Receive Date: 20140421
  Receipt Date: 20140421
  Transmission Date: 20141212
  Serious: No
  Sender: FDA-Public Use
  Company Number: US-SANOFI-AVENTIS-2013SA021874

PATIENT
  Age: 83 Year
  Sex: Male
  Weight: 63.5 kg

DRUGS (2)
  1. ALLEGRA [Suspect]
     Indication: HYPERSENSITIVITY
     Dosage: FREQUENCY 1
     Route: 048
     Dates: start: 20130223
  2. ALLEGRA [Suspect]
     Indication: HYPERSENSITIVITY
     Route: 048
     Dates: start: 20130314, end: 20130314

REACTIONS (1)
  - Headache [Recovered/Resolved with Sequelae]
